FAERS Safety Report 6699029-2 (Version None)
Quarter: 2010Q2

REPORT INFORMATION
  Report Type: 
  Country: None (occurrence: None)
  Receive Date: 20100427
  Receipt Date: 20100420
  Transmission Date: 20101027
  Serious: Yes (Other)
  Sender: FDA-Public Use
  Company Number: IT-BRISTOL-MYERS SQUIBB COMPANY-15070642

PATIENT
  Age: 86 Year
  Sex: Female

DRUGS (2)
  1. KENALOG [Suspect]
     Indication: CHOROIDAL NEOVASCULARISATION
     Dosage: 1 DF = 4MG IN 0.1ML OF SALINE. ROA- INTRAVITREAL
     Route: 031
  2. VERTEPORFIN [Suspect]

REACTIONS (3)
  - CHOROIDAL INFARCTION [None]
  - RETINAL INFARCTION [None]
  - VISUAL ACUITY REDUCED [None]
